FAERS Safety Report 4886718-5 (Version None)
Quarter: 2006Q1

REPORT INFORMATION
  Report Type: 
  Country: None (occurrence: None)
  Receive Date: 20060119
  Receipt Date: 20060109
  Transmission Date: 20060701
  Serious: Yes (Death, Hospitalization, Other)
  Sender: FDA-Public Use
  Company Number: FR-2005-024106

PATIENT
  Age: 63 Year
  Sex: Male
  Weight: 121 kg

DRUGS (7)
  1. SOTALOL HCL [Suspect]
     Dosage: 160 MG, 1X/DAY, ORAL
     Route: 048
  2. GLUCOPHAGE [Suspect]
     Indication: DIABETES MELLITUS
     Dosage: 100 MG, 1X/DAY, ORAL
     Route: 048
     Dates: end: 20050929
  3. APROVEL (IRBESARTAN) [Suspect]
     Indication: ESSENTIAL HYPERTENSION
     Dosage: 1 TAB(S), 1X/DAY, ORAL
     Route: 048
     Dates: end: 20050929
  4. AMARYL [Concomitant]
  5. INDAPAMIDE [Concomitant]
  6. LIPANTYL ^BRISTOL-MYERS SQUIBB^ (FENOFIBRATE) [Concomitant]
  7. PHYSIOTENS ^GIULINI^ (MOXONIDINE) [Concomitant]

REACTIONS (26)
  - ACTIVATED PARTIAL THROMBOPLASTIN TIME SHORTENED [None]
  - BLOOD CHLORIDE DECREASED [None]
  - BLOOD FIBRINOGEN INCREASED [None]
  - BLOOD GLUCOSE INCREASED [None]
  - BLOOD POTASSIUM DECREASED [None]
  - BLOOD PRESSURE ABNORMAL [None]
  - BLOOD SODIUM DECREASED [None]
  - COAGULATION FACTOR V LEVEL DECREASED [None]
  - COAGULATION FACTOR X LEVEL DECREASED [None]
  - DEHYDRATION [None]
  - ENTERITIS [None]
  - ESCHERICHIA SEPSIS [None]
  - FOOD POISONING [None]
  - HAEMODIALYSIS [None]
  - HAEMOGLOBIN INCREASED [None]
  - HYPOVOLAEMIA [None]
  - INTESTINAL ISCHAEMIA [None]
  - LACTIC ACIDOSIS [None]
  - PO2 DECREASED [None]
  - PROCTOCOLITIS [None]
  - PROTHROMBIN LEVEL DECREASED [None]
  - PROTHROMBIN TIME SHORTENED [None]
  - RENAL FAILURE ACUTE [None]
  - RHABDOMYOLYSIS [None]
  - SEPTIC SHOCK [None]
  - STAPHYLOCOCCAL BACTERAEMIA [None]
